FAERS Safety Report 4388618-6 (Version None)
Quarter: 2004Q2

REPORT INFORMATION
  Report Type: 
  Country: None (occurrence: None)
  Receive Date: 20040624
  Receipt Date: 20040609
  Transmission Date: 20050107
  Serious: Yes (Other)
  Sender: FDA-Public Use
  Company Number: 207206

PATIENT
  Age: 27 Year
  Sex: Female

DRUGS (1)
  1. MABTHERA (RITUXIMAB) CONC FOR SOLUTION FOR INFUSION [Suspect]
     Indication: LYMPHOPROLIFERATIVE DISORDER
     Dosage: INTRAVENOUS
     Route: 042

REACTIONS (1)
  - NEUTROPENIA [None]
